FAERS Safety Report 17080335 (Version 1)
Quarter: 2019Q4

REPORT INFORMATION
  Report Type: Spontaneous
  Country: DK (occurrence: DK)
  Receive Date: 20191127
  Receipt Date: 20191127
  Transmission Date: 20200122
  Serious: No
  Sender: FDA-Public Use
  Company Number: DK-TEVA-662222ISR

PATIENT
  Age: 21 Year
  Sex: Female

DRUGS (5)
  1. DICLOXACILLIN [Concomitant]
     Active Substance: DICLOXACILLIN
     Indication: DERMATOPHYTOSIS
  2. METRONIDAZOLE. [Concomitant]
     Active Substance: METRONIDAZOLE
     Indication: DERMATOPHYTOSIS
  3. TERBINAFINE. [Concomitant]
     Active Substance: TERBINAFINE
     Indication: DERMATOPHYTOSIS
  4. ISOTRETINOIN. [Suspect]
     Active Substance: ISOTRETINOIN
     Indication: HYPERKERATOSIS
     Dosage: 40 MILLIGRAM DAILY;
  5. SILVER SULFADIAZINE. [Concomitant]
     Active Substance: SILVER SULFADIAZINE
     Indication: DERMATOPHYTOSIS
     Route: 061

REACTIONS (3)
  - Maternal exposure during pregnancy [Unknown]
  - Skin disorder [Unknown]
  - Mucosal disorder [Unknown]
